FAERS Safety Report 6871313-9 (Version None)
Quarter: 2010Q3

REPORT INFORMATION
  Report Type: 
  Country: None (occurrence: None)
  Receive Date: 20100723
  Receipt Date: 20100713
  Transmission Date: 20110219
  Serious: Yes (Other)
  Sender: FDA-Public Use
  Company Number: US-PFIZER INC-2010076324

PATIENT
  Sex: Female

DRUGS (3)
  1. ZOLOFT [Suspect]
     Indication: MAJOR DEPRESSION
     Dosage: 100 MG, 2X/DAY
     Route: 064
     Dates: start: 20090313
  2. GEODON [Suspect]
     Indication: MAJOR DEPRESSION
     Dosage: 80MG IN AM, 160MG HS
     Route: 064
     Dates: start: 20081104
  3. COGENTIN [Concomitant]
     Indication: EXTRAPYRAMIDAL DISORDER
     Dosage: AS NEEDED
     Route: 064
     Dates: start: 20080523

REACTIONS (6)
  - AORTIC VALVE INCOMPETENCE [None]
  - ATRIAL SEPTAL DEFECT [None]
  - BICUSPID AORTIC VALVE [None]
  - DRUG EXPOSURE DURING PREGNANCY [None]
  - PATENT DUCTUS ARTERIOSUS [None]
  - TRICUSPID VALVE INCOMPETENCE [None]
